FAERS Safety Report 13896607 (Version 2)
Quarter: 2017Q3

REPORT INFORMATION
  Report Type: Spontaneous
  Country: BR (occurrence: BR)
  Receive Date: 20170823
  Receipt Date: 20170911
  Transmission Date: 20171127
  Serious: Yes (Death)
  Sender: FDA-Public Use
  Company Number: BR-NOVOPROD-559043

PATIENT
  Age: 24 Year
  Sex: Male

DRUGS (1)
  1. NOVOSEVEN [Suspect]
     Active Substance: COAGULATION FACTOR VIIA RECOMBINANT HUMAN
     Indication: HAEMOPHILIA
     Dosage: 7 MG (90 ?G/KG BODY WEIGHT)
     Route: 065

REACTIONS (2)
  - Treatment failure [Unknown]
  - Central nervous system haemorrhage [Fatal]
